FAERS Safety Report 7078106 (Version 7)
Quarter: 2012Q4

REPORT INFORMATION
  Report Type: 
  Country: US (occurrence: US)
  Receive Date: 20090811
  Receipt Date: 20121130
  Transmission Date: 20130627
  Serious: Yes (Other)
  Sender: FDA-Public Use
  Company Number: US-JNJFOC-20090802421

PATIENT
  Sex: Male

DRUGS (8)
  1. RISPERDAL [Suspect]
     Indication: PANIC ATTACK
     Route: 065
  2. RISPERDAL [Suspect]
     Indication: ANXIETY
     Route: 065
  3. RISPERDAL [Suspect]
     Indication: BIPOLAR DISORDER
     Route: 065
  4. SEROQUEL [Suspect]
     Indication: PANIC ATTACK
     Route: 065
  5. SEROQUEL [Suspect]
     Indication: ANXIETY
     Route: 065
  6. SEROQUEL [Suspect]
     Indication: BIPOLAR DISORDER
     Route: 065
  7. ZYPREXA [Suspect]
     Indication: PRODUCT USED FOR UNKNOWN INDICATION
     Route: 065
  8. STEROIDS NOS [Suspect]
     Indication: PRODUCT USED FOR UNKNOWN INDICATION
     Route: 008

REACTIONS (3)
  - Type 2 diabetes mellitus [Unknown]
  - Weight increased [Unknown]
  - Tongue spasm [Unknown]
